FAERS Safety Report 15021134 (Version 1)
Quarter: 2018Q2

REPORT INFORMATION
  Report Type: Spontaneous
  Country: US (occurrence: US)
  Receive Date: 20180601
  Receipt Date: 20180601
  Transmission Date: 20180711
  Serious: Yes (Death, Hospitalization)
  Sender: FDA-Public Use
  Company Number: None

PATIENT
  Age: 67 Year
  Sex: Male
  Weight: 101.3 kg

DRUGS (14)
  1. RITUXIMAB. [Suspect]
     Active Substance: RITUXIMAB
     Indication: RHEUMATOID ARTHRITIS
     Dosage: OTHER FREQUENCY:EVERY 6 MONTHS;?
     Route: 042
     Dates: start: 20170501
  2. AMLODIPINE 10 MG [Concomitant]
     Active Substance: AMLODIPINE BESYLATE
  3. OMEPRAZOLE 40 MG [Concomitant]
     Active Substance: OMEPRAZOLE
  4. LISINOPRIL 10 MG [Concomitant]
     Active Substance: LISINOPRIL
  5. PREGABALIN 50 MG [Concomitant]
  6. METHYLPREDNISOLONE 125 MG PRIOR TO EACH RITUXIMAB INFUSION [Concomitant]
     Dates: start: 20170501
  7. ASPIRIN 325 MG [Concomitant]
     Active Substance: ASPIRIN
  8. GLIPIZIDE 5 MG [Concomitant]
  9. FERROUS SULFATE 325 MG [Concomitant]
  10. HYDROCODONE/APAP 10 [Concomitant]
  11. JENTADUETO 2.5/1000 [Concomitant]
  12. PREDNISONE 10 MG [Concomitant]
     Active Substance: PREDNISONE
  13. TRAZODONE [Concomitant]
     Active Substance: TRAZODONE HYDROCHLORIDE
  14. VITAMIN D 2000 UNITS [Concomitant]

REACTIONS (11)
  - Agitation [None]
  - Chills [None]
  - Pyrexia [None]
  - Anaphylactic shock [None]
  - Injection site reaction [None]
  - Diarrhoea [None]
  - Hypotension [None]
  - Vomiting [None]
  - Stupor [None]
  - Urticaria [None]
  - Infection [None]

NARRATIVE: CASE EVENT DATE: 20180508
